FAERS Safety Report 6837316-5 (Version None)
Quarter: 2010Q3

REPORT INFORMATION
  Report Type: 
  Country: None (occurrence: None)
  Receive Date: 20100713
  Receipt Date: 20070514
  Transmission Date: 20110219
  Serious: Yes (Other)
  Sender: FDA-Public Use
  Company Number: US-PFIZER INC-2007038768

PATIENT
  Sex: Female
  Weight: 55.909 kg

DRUGS (3)
  1. CHANTIX [Suspect]
     Indication: SMOKING CESSATION THERAPY
     Route: 048
     Dates: start: 20070101
  2. HYZAAR [Concomitant]
  3. LOTREL [Concomitant]

REACTIONS (2)
  - DIZZINESS [None]
  - WEIGHT INCREASED [None]
